FAERS Safety Report 6912589-9 (Version None)
Quarter: 2010Q3

REPORT INFORMATION
  Report Type: 
  Country: None (occurrence: None)
  Receive Date: 20100806
  Receipt Date: 20080722
  Transmission Date: 20110219
  Serious: No
  Sender: FDA-Public Use
  Company Number: US-PFIZER INC-2008055211

PATIENT
  Sex: Female
  Weight: 63.6 kg

DRUGS (4)
  1. DETROL LA [Suspect]
     Indication: URINARY INCONTINENCE
     Dates: start: 20080630
  2. DETROL LA [Suspect]
     Indication: HYPERTONIC BLADDER
  3. CALCIUM [Concomitant]
  4. VITAMIN TAB [Concomitant]

REACTIONS (2)
  - HEADACHE [None]
  - POLLAKIURIA [None]
